FAERS Safety Report 10308539 (Version 2)
Quarter: 2014Q3

REPORT INFORMATION
  Report Type: Spontaneous
  Country: US (occurrence: US)
  Receive Date: 20140716
  Receipt Date: 20140716
  Transmission Date: 20150326
  Serious: Yes (Hospitalization)
  Sender: FDA-Public Use
  Company Number: US-GLAXOSMITHKLINE-A0897819A

PATIENT
  Sex: Female
  Weight: 70.5 kg

DRUGS (1)
  1. AVANDIA [Suspect]
     Active Substance: ROSIGLITAZONE MALEATE
     Indication: TYPE 2 DIABETES MELLITUS
     Dosage: 8MG PER DAY
     Route: 048
     Dates: start: 200606, end: 200706

REACTIONS (4)
  - Lacunar infarction [Unknown]
  - Cerebrovascular accident [Unknown]
  - Coronary artery disease [Unknown]
  - Transient ischaemic attack [Unknown]
